FAERS Safety Report 8873715 (Version 1)
Quarter: 2012Q4

REPORT INFORMATION
  Report Type: 
  Country: US (occurrence: US)
  Receive Date: 20121026
  Receipt Date: 20121026
  Transmission Date: 20130627
  Serious: Yes (Death)
  Sender: FDA-Public Use
  Company Number: US-ASTRAZENECA-2009UW06509

PATIENT
  Age: 56 Year
  Sex: Male

DRUGS (4)
  1. SYMBICORT PMDI [Suspect]
     Dosage: UNKNOWN STRENGHT AND FREQUENCY
     Route: 055
  2. NEXIUM [Suspect]
     Route: 048
  3. ACCOLATE [Suspect]
     Route: 048
  4. ACCOLATE [Suspect]
     Route: 048

REACTIONS (2)
  - Death [Fatal]
  - Intentional drug misuse [Unknown]
